FAERS Safety Report 4284876-7 (Version None)
Quarter: 2004Q1

REPORT INFORMATION
  Report Type: 
  Country: None (occurrence: None)
  Receive Date: 20040202
  Receipt Date: 20040119
  Transmission Date: 20041129
  Serious: No
  Sender: FDA-Public Use
  Company Number: A001-002-005955

PATIENT
  Sex: Female

DRUGS (4)
  1. ARICEPT [Suspect]
     Indication: DEMENTIA ALZHEIMER'S TYPE
     Dosage: ORAL
     Route: 048
  2. RISPERDAL [Concomitant]
  3. BLOOD PRESSURE MEDICATION [Concomitant]
  4. HEART MEDICATIONS [Concomitant]

REACTIONS (5)
  - APHAGIA [None]
  - DEMENTIA ALZHEIMER'S TYPE [None]
  - DISEASE PROGRESSION [None]
  - DRUG INEFFECTIVE [None]
  - WEIGHT DECREASED [None]
